FAERS Safety Report 9649280 (Version 1)
Quarter: 2013Q4

REPORT INFORMATION
  Report Type: Spontaneous
  Country: FR (occurrence: FR)
  Receive Date: 20131028
  Receipt Date: 20131028
  Transmission Date: 20140711
  Serious: Yes (Hospitalization)
  Sender: FDA-Public Use
  Company Number: FR-GLAXOSMITHKLINE-B0935544A

PATIENT
  Age: 58 Year
  Sex: Male

DRUGS (8)
  1. ZOPHREN [Suspect]
     Indication: PREMEDICATION
     Dosage: 8MG CYCLIC
     Route: 048
     Dates: start: 20130911, end: 20130911
  2. OXALIPLATINE [Suspect]
     Indication: ADENOCARCINOMA
     Dosage: 170MG CYCLIC
     Route: 042
     Dates: start: 20130911, end: 20130911
  3. AVASTIN (BEVACIZUMAB) [Suspect]
     Indication: ADENOCARCINOMA
     Dosage: 430MG CYCLIC
     Route: 042
     Dates: start: 20130911, end: 20130911
  4. EMEND [Suspect]
     Indication: PREMEDICATION
     Dosage: 125MG CYCLIC
     Route: 048
     Dates: start: 20130911, end: 20130911
  5. CORTANCYL [Suspect]
     Indication: PREMEDICATION
     Dosage: 80MG CYCLIC
     Route: 048
     Dates: start: 20130911, end: 20130911
  6. JANUVIA [Concomitant]
     Dosage: 100MG PER DAY
  7. PRAVASTATINE [Concomitant]
     Dosage: 40MG PER DAY
  8. AMAREL [Concomitant]
     Dosage: 1MG PER DAY

REACTIONS (4)
  - Anaphylactic shock [Recovered/Resolved]
  - Rash erythematous [Recovered/Resolved]
  - Hypotension [Recovered/Resolved]
  - Hyperhidrosis [Recovered/Resolved]
